FAERS Safety Report 8791090 (Version 1)
Quarter: 2012Q4

REPORT INFORMATION
  Report Type: Spontaneous
  Country: US (occurrence: None)
  Receive Date: 20120913
  Receipt Date: 20120913
  Transmission Date: 20130627
  Serious: Yes (Other)
  Sender: FDA-Public Use
  Company Number: None

PATIENT
  Age: 83 Year
  Sex: Female

DRUGS (1)
  1. FORTEO [Suspect]
     Route: 058
     Dates: start: 20111031

REACTIONS (3)
  - Herpes zoster [None]
  - Injection site reaction [None]
  - Skin disorder [None]
